FAERS Safety Report 14091944 (Version 1)
Quarter: 2017Q4

REPORT INFORMATION
  Report Type: Spontaneous
  Country: US (occurrence: US)
  Receive Date: 20171016
  Receipt Date: 20171016
  Transmission Date: 20180321
  Serious: No
  Sender: FDA-Public Use
  Company Number: US-PFIZER INC-2017441800

PATIENT
  Age: 3 Decade
  Sex: Female

DRUGS (1)
  1. EUCRISA [Suspect]
     Active Substance: CRISABOROLE
     Dosage: 2.5 G, UNK
     Route: 061

REACTIONS (3)
  - Drug hypersensitivity [Unknown]
  - Application site pain [Unknown]
  - Blister [Unknown]
